FAERS Safety Report 9561319 (Version 1)
Quarter: 2013Q3

REPORT INFORMATION
  Report Type: Spontaneous
  Country: DE (occurrence: KR)
  Receive Date: 20130927
  Receipt Date: 20130927
  Transmission Date: 20140515
  Serious: Yes (Death, Hospitalization)
  Sender: FDA-Public Use
  Company Number: KR-FRI-1000049136

PATIENT
  Age: 76 Year
  Sex: Male
  Weight: 49 kg

DRUGS (7)
  1. ROFLUMILAST [Suspect]
     Indication: CHRONIC OBSTRUCTIVE PULMONARY DISEASE
     Route: 048
     Dates: start: 20130625
  2. ATROVENT [Concomitant]
     Dates: start: 20130624
  3. VENTOLIN [Concomitant]
     Dates: start: 20130624
  4. MUCOPECT [Concomitant]
     Dates: start: 20130626
  5. GASTER [Concomitant]
     Dates: start: 20130624
  6. NAFRIL [Concomitant]
     Dates: start: 20130625
  7. AFLOQUALONE [Concomitant]
     Dates: start: 20130625

REACTIONS (1)
  - Dyspnoea [Fatal]
